FAERS Safety Report 18819787 (Version 1)
Quarter: 2021Q1

REPORT INFORMATION
  Report Type: Spontaneous
  Country: US (occurrence: US)
  Receive Date: 20210202
  Receipt Date: 20210202
  Transmission Date: 20210419
  Serious: Yes (Other)
  Sender: FDA-Public Use
  Company Number: US-CADILA HEALTHCARE LIMITED-US-ZYDUS-061522

PATIENT

DRUGS (6)
  1. CARIPRAZINE [Suspect]
     Active Substance: CARIPRAZINE
     Indication: SUICIDE ATTEMPT
     Dosage: 60 MILLIGRAM (20 TABLET)
     Route: 065
  2. MIRTAZAPINE. [Suspect]
     Active Substance: MIRTAZAPINE
     Indication: SUICIDE ATTEMPT
     Dosage: 105 MILLIGRAM (7 TABLET)
     Route: 065
  3. SUMATRIPTAN. [Suspect]
     Active Substance: SUMATRIPTAN
     Indication: SUICIDE ATTEMPT
     Dosage: 200 MILLIGRAM (2 TABLET)
     Route: 065
  4. TOPIRAMATE. [Suspect]
     Active Substance: TOPIRAMATE
     Indication: SUICIDE ATTEMPT
     Dosage: 350 MILLIGRAM (7 TABLETS)
     Route: 065
  5. NAPROXEN. [Suspect]
     Active Substance: NAPROXEN
     Indication: SUICIDE ATTEMPT
     Dosage: 440 MILLIGRAM (2 TABLET)
     Route: 065
  6. PALIPERIDONE. [Suspect]
     Active Substance: PALIPERIDONE
     Indication: SUICIDE ATTEMPT
     Dosage: 42 MILLIGRAM (7 TABLET)
     Route: 065

REACTIONS (4)
  - Suicide attempt [Unknown]
  - Acute coronary syndrome [Unknown]
  - Atrioventricular block first degree [Unknown]
  - Overdose [Unknown]
